FAERS Safety Report 23786537 (Version 3)
Quarter: 2024Q4

REPORT INFORMATION
  Report Type: Spontaneous
  Country: SK (occurrence: SK)
  Receive Date: 20240426
  Receipt Date: 20241108
  Transmission Date: 20250114
  Serious: Yes (Hospitalization, Other)
  Sender: CHEPLAPHARM
  Company Number: None

PATIENT
  Age: 63 Year
  Sex: Female

DRUGS (1)
  1. CAPECITABINE [Suspect]
     Active Substance: CAPECITABINE
     Indication: Breast cancer metastatic
     Dosage: 4 CYCLES
     Route: 048
     Dates: start: 201403

REACTIONS (6)
  - Pelvic venous thrombosis [Unknown]
  - Embolism venous [Recovered/Resolved]
  - Deep vein thrombosis [Unknown]
  - Peripheral artery thrombosis [Unknown]
  - Deep vein thrombosis [Unknown]
  - Thrombosis [Unknown]

NARRATIVE: CASE EVENT DATE: 20140101
